FAERS Safety Report 12944482 (Version 2)
Quarter: 2016Q4

REPORT INFORMATION
  Report Type: Spontaneous
  Country: FR (occurrence: FR)
  Receive Date: 20161115
  Receipt Date: 20161122
  Transmission Date: 20170207
  Serious: Yes (Death, Other)
  Sender: FDA-Public Use
  Company Number: FR-SA-2016SA206287

PATIENT
  Age: 62 Year
  Sex: Male

DRUGS (2)
  1. GLIMEPIRIDE. [Suspect]
     Active Substance: GLIMEPIRIDE
     Indication: DIABETES MELLITUS
     Route: 065
  2. TRIMETHOPRIM/SULFAMETHOXAZOLE [Interacting]
     Active Substance: SULFAMETHOXAZOLE\TRIMETHOPRIM
     Indication: STAPHYLOCOCCAL INFECTION
     Route: 065
     Dates: start: 201508

REACTIONS (6)
  - Drug interaction [Fatal]
  - Blood glucose decreased [Fatal]
  - Renal failure [Unknown]
  - Hypoglycaemic coma [Fatal]
  - Coma [Fatal]
  - Coma scale abnormal [Fatal]
